FAERS Safety Report 19407229 (Version 1)
Quarter: 2021Q2

REPORT INFORMATION
  Report Type: Spontaneous
  Country: CA (occurrence: CA)
  Receive Date: 20210611
  Receipt Date: 20210611
  Transmission Date: 20210717
  Serious: Yes (Hospitalization, Other)
  Sender: FDA-Public Use
  Company Number: CA-GLAXOSMITHKLINE-CA2021AMR122032

PATIENT
  Sex: Male

DRUGS (4)
  1. HUMIRA [Suspect]
     Active Substance: ADALIMUMAB
     Indication: CROHN^S DISEASE
     Dosage: 40 MG, Z, EVERY 1 WEEK
     Route: 058
  2. PREDNISONE. [Concomitant]
     Active Substance: PREDNISONE
     Indication: PRODUCT USED FOR UNKNOWN INDICATION
     Dosage: 50 MG, UNK
  3. ACYCLOVIR. [Suspect]
     Active Substance: ACYCLOVIR
     Indication: PRODUCT USED FOR UNKNOWN INDICATION
     Dosage: UNK
  4. PREDNISONE. [Concomitant]
     Active Substance: PREDNISONE
     Dosage: 10 MG, UNK

REACTIONS (12)
  - Arthritis reactive [Unknown]
  - Blood creatinine increased [Unknown]
  - Gout [Unknown]
  - Blood uric acid increased [Unknown]
  - Immunodeficiency [Unknown]
  - Skin lesion [Unknown]
  - Gait disturbance [Unknown]
  - Nephrolithiasis [Unknown]
  - SARS-CoV-2 test positive [Unknown]
  - Plantar fasciitis [Unknown]
  - Renal injury [Unknown]
  - Staphylococcus test positive [Unknown]
